FAERS Safety Report 5553297-9 (Version None)
Quarter: 2007Q4

REPORT INFORMATION
  Report Type: 
  Country: None (occurrence: None)
  Receive Date: 20071212
  Receipt Date: 20070712
  Transmission Date: 20080405
  Serious: No
  Sender: FDA-Public Use
  Company Number: US-AMGEN-KDL233957

PATIENT
  Sex: Female

DRUGS (3)
  1. ENBREL [Suspect]
     Indication: RHEUMATOID ARTHRITIS
     Route: 058
     Dates: start: 20070712
  2. ENBREL [Suspect]
     Indication: OSTEOARTHRITIS
  3. ARAVA [Concomitant]
     Dates: start: 20070301

REACTIONS (1)
  - INJECTION SITE IRRITATION [None]
